FAERS Safety Report 14248984 (Version 1)
Quarter: 2017Q4

REPORT INFORMATION
  Report Type: Spontaneous
  Country: BG (occurrence: BG)
  Receive Date: 20171204
  Receipt Date: 20171204
  Transmission Date: 20180321
  Serious: Yes (Other)
  Sender: FDA-Public Use
  Company Number: BG-ELI_LILLY_AND_COMPANY-BG201703003607

PATIENT
  Age: 66 Year
  Sex: Male

DRUGS (3)
  1. DEXAMETHASONE. [Concomitant]
     Active Substance: DEXAMETHASONE
     Indication: PREMEDICATION
     Dosage: 160 MG, UNKNOWN
     Route: 065
  2. ALLERGOSAN [Concomitant]
     Indication: PREMEDICATION
     Dosage: 2 DF, UNKNOWN
     Route: 065
  3. ERBITUX [Suspect]
     Active Substance: CETUXIMAB
     Indication: LARYNGEAL CANCER
     Dosage: 700 MG, UNKNOWN
     Route: 042
     Dates: start: 20170222

REACTIONS (8)
  - Hypotension [Recovered/Resolved]
  - Heart rate increased [Recovered/Resolved]
  - Rash [Recovered/Resolved]
  - Flushing [Recovered/Resolved]
  - Urticaria [Recovered/Resolved]
  - Erythema [Recovered/Resolved]
  - Nausea [Recovered/Resolved]
  - Pruritus [Recovered/Resolved]

NARRATIVE: CASE EVENT DATE: 20170222
